FAERS Safety Report 9922139 (Version 1)
Quarter: 2014Q1

REPORT INFORMATION
  Report Type: Report from Study
  Country: US (occurrence: US)
  Receive Date: 20140225
  Receipt Date: 20140225
  Transmission Date: 20141002
  Serious: Yes (Death, Life-Threatening, Hospitalization)
  Sender: FDA-Public Use
  Company Number: US-009507513-1402USA011473

PATIENT
  Sex: Female
  Weight: 76.8 kg

DRUGS (4)
  1. VORINOSTAT [Suspect]
     Indication: ACUTE MYELOID LEUKAEMIA
     Dosage: 500MG PO ON DAYS 1-3 (DAILY DOSE= 1500MG)
     Route: 048
     Dates: start: 20140118, end: 20140121
  2. IDARUBICIN HYDROCHLORIDE [Suspect]
     Indication: ACUTE MYELOID LEUKAEMIA
     Dosage: 12MG/M2/DAY IV OVER 15 MIN ON DAYS 4-6
     Route: 042
     Dates: start: 20140121, end: 20140123
  3. CYTARABINE [Suspect]
     Dosage: 1500MG/M2/DAY CONTINUOUS IV INFUSION ON DAYS 4-7
     Route: 042
     Dates: start: 20140121, end: 20140124
  4. AFLURIA [Suspect]

REACTIONS (6)
  - Sepsis [Unknown]
  - Hypokalaemia [Unknown]
  - Hypernatraemia [Unknown]
  - Respiratory failure [Fatal]
  - Blood creatinine increased [Unknown]
  - Cerebrovascular accident [Unknown]
